FAERS Safety Report 9280214 (Version 1)
Quarter: 2013Q2

REPORT INFORMATION
  Report Type: Spontaneous
  Country: US (occurrence: None)
  Receive Date: 20130507
  Receipt Date: 20130507
  Transmission Date: 20140414
  Serious: Yes (Life-Threatening, Hospitalization)
  Sender: FDA-Public Use
  Company Number: None

PATIENT
  Age: 61 Year
  Sex: Female
  Weight: 101.6 kg

DRUGS (9)
  1. VOTRIENT [Suspect]
     Indication: METASTATIC RENAL CELL CARCINOMA
     Dosage: 800 MG DAILY PO
     Route: 048
     Dates: start: 20130314, end: 20130401
  2. AMLODIPINE [Concomitant]
  3. ATORVASTATIN [Concomitant]
  4. CALCIUM CARBONATE / VIT D3 [Concomitant]
  5. LOSARTAN [Concomitant]
  6. MAGNESIUM [Concomitant]
  7. METOPROLOL TARTRATE [Concomitant]
  8. OXYCODONE [Concomitant]
  9. ZOLPIDEM [Concomitant]

REACTIONS (5)
  - Hypertensive crisis [None]
  - Acute myocardial infarction [None]
  - Ischaemia [None]
  - Stress cardiomyopathy [None]
  - Blood pressure increased [None]
